FAERS Safety Report 5037009-3 (Version None)
Quarter: 2006Q2

REPORT INFORMATION
  Report Type: 
  Country: None (occurrence: None)
  Receive Date: 20060601
  Receipt Date: 20060328
  Transmission Date: 20061013
  Serious: Yes (Other)
  Sender: FDA-Public Use
  Company Number: US200602002995

PATIENT
  Age: 63 Year
  Sex: Male
  Weight: 75.7 kg

DRUGS (3)
  1. CYMBALTA [Suspect]
     Indication: PAIN
     Dosage: 30 MG
  2. GABITRIL /SCH/ (TIAGABINE HYDROCHLORIDE) [Concomitant]
  3. METHADONE HCL [Concomitant]

REACTIONS (2)
  - CONFUSIONAL STATE [None]
  - HALLUCINATION [None]
